FAERS Safety Report 6041984-8 (Version None)
Quarter: 2009Q1

REPORT INFORMATION
  Report Type: 
  Country: None (occurrence: None)
  Receive Date: 20090116
  Receipt Date: 20090109
  Transmission Date: 20090719
  Serious: Yes (Disabling)
  Sender: FDA-Public Use
  Company Number: US-MERCK-0704USA00283

PATIENT
  Age: 58 Year
  Sex: Female

DRUGS (5)
  1. FOSAMAX [Suspect]
     Indication: OSTEOPOROSIS
     Route: 048
  2. PREMPRO [Concomitant]
     Route: 065
  3. PLENDIL [Concomitant]
     Route: 048
  4. LESCOL [Concomitant]
     Route: 065
  5. CITRICAL [Concomitant]
     Route: 065

REACTIONS (4)
  - ANXIETY [None]
  - ONYCHOMYCOSIS [None]
  - RESORPTION BONE INCREASED [None]
  - SENSITIVITY OF TEETH [None]
